FAERS Safety Report 6142470-7 (Version None)
Quarter: 2009Q2

REPORT INFORMATION
  Report Type: 
  Country: None (occurrence: None)
  Receive Date: 20090401
  Receipt Date: 20090401
  Transmission Date: 20091009
  Serious: Yes (Other)
  Sender: FDA-Public Use
  Company Number: None

PATIENT
  Sex: Female
  Weight: 26.5 kg

DRUGS (2)
  1. SINGULAIR [Suspect]
     Indication: ASTHMA
     Dosage: 5 MG ONCE DAILY PO
     Route: 048
     Dates: start: 20071201, end: 20080301
  2. MAXAIR [Concomitant]

REACTIONS (5)
  - ANXIETY [None]
  - DEPRESSION [None]
  - FEAR [None]
  - PARANOIA [None]
  - SUICIDAL IDEATION [None]
